FAERS Safety Report 4459008-2 (Version None)
Quarter: 2004Q3

REPORT INFORMATION
  Report Type: 
  Country: None (occurrence: None)
  Receive Date: 20040923
  Receipt Date: 20040923
  Transmission Date: 20050211
  Serious: Yes (Life-Threatening)
  Sender: FDA-Public Use
  Company Number: None

PATIENT
  Age: 69 Year
  Sex: Female
  Weight: 59.2 kg

DRUGS (1)
  1. ERBITUX (CETUXIMAB) [Suspect]
     Indication: COLON CANCER METASTATIC
     Dosage: 650 MG IV ONCE
     Route: 042
     Dates: start: 20040805

REACTIONS (5)
  - ANAPHYLACTIC REACTION [None]
  - BRADYCARDIA [None]
  - CONVULSION [None]
  - HYPOTENSION [None]
  - RESPIRATORY ARREST [None]
